FAERS Safety Report 24716559 (Version 3)
Quarter: 2025Q2

REPORT INFORMATION
  Report Type: Report from Study
  Country: AT (occurrence: AT)
  Receive Date: 20241210
  Receipt Date: 20250629
  Transmission Date: 20250716
  Serious: Yes (Congenital Anomaly)
  Sender: JOHNSON AND JOHNSON
  Company Number: AT-ABBVIE-5969283

PATIENT
  Sex: Female

DRUGS (5)
  1. PREZISTA [Suspect]
     Active Substance: DARUNAVIR ETHANOLATE
     Indication: Maternal exposure timing unspecified
     Route: 064
  2. PREZISTA [Suspect]
     Active Substance: DARUNAVIR ETHANOLATE
     Route: 064
  3. LOPINAVIR AND RITONAVIR [Suspect]
     Active Substance: LOPINAVIR\RITONAVIR
     Indication: Maternal exposure timing unspecified
     Route: 064
  4. ZIDOVUDINE [Suspect]
     Active Substance: ZIDOVUDINE
     Indication: Maternal exposure timing unspecified
     Route: 064
  5. FUZEON [Suspect]
     Active Substance: ENFUVIRTIDE
     Indication: Maternal exposure timing unspecified
     Route: 064

REACTIONS (2)
  - Plagiocephaly [Unknown]
  - Foetal exposure during pregnancy [Unknown]
